FAERS Safety Report 14294220 (Version 2)
Quarter: 2017Q4

REPORT INFORMATION
  Report Type: Report from Study
  Country: BR (occurrence: BR)
  Receive Date: 20171217
  Receipt Date: 20171219
  Transmission Date: 20180321
  Serious: Yes (Life-Threatening)
  Sender: FDA-Public Use
  Company Number: PHHY2017BR185083

PATIENT
  Age: 43 Year
  Sex: Female
  Weight: 84 kg

DRUGS (2)
  1. AEROLIN [Concomitant]
     Active Substance: ALBUTEROL
     Indication: PRODUCT USED FOR UNKNOWN INDICATION
     Route: 065
  2. FORASEQ [Suspect]
     Active Substance: BUDESONIDE\FORMOTEROL FUMARATE
     Indication: LUNG DISORDER
     Dosage: 1 DF, (BUDESONIDE 400 MCG AND FORMOTEROL 12 MCG), UNK, (SHE USES IT 3 TIMES A DAY BUT SOMETIMES SHE
     Route: 055

REACTIONS (17)
  - Wheezing [Unknown]
  - Nervousness [Unknown]
  - Visual impairment [Unknown]
  - Fatigue [Not Recovered/Not Resolved]
  - Lung disorder [Unknown]
  - Bronchitis [Unknown]
  - Dizziness [Unknown]
  - Incorrect dose administered by device [Unknown]
  - Malaise [Unknown]
  - Hypersensitivity [Not Recovered/Not Resolved]
  - Headache [Not Recovered/Not Resolved]
  - Retching [Unknown]
  - Eye pain [Unknown]
  - Product use in unapproved indication [Unknown]
  - Inappropriate schedule of drug administration [Unknown]
  - Dyspnoea [Unknown]
  - Device breakage [Unknown]

NARRATIVE: CASE EVENT DATE: 20171211
